FAERS Safety Report 10679172 (Version 2)
Quarter: 2015Q1

REPORT INFORMATION
  Report Type: Spontaneous
  Country: DE (occurrence: DE)
  Receive Date: 20141229
  Receipt Date: 20150112
  Transmission Date: 20150720
  Serious: Yes (Hospitalization)
  Sender: FDA-Public Use
  Company Number: DE-TEVA-530649GER

PATIENT
  Age: 53 Year
  Sex: Female

DRUGS (4)
  1. MARCUMAR [Suspect]
     Active Substance: PHENPROCOUMON
     Dosage: INTAKE: FOR APPROXIMATELY 5W
     Route: 065
  2. NOREPINEPHRINE [Concomitant]
     Active Substance: NOREPINEPHRINE\NOREPINEPHRINE BITARTRATE
     Dosage: 1.5MCG/KG/MIN
     Route: 065
  3. PREGABALIN. [Suspect]
     Active Substance: PREGABALIN
     Indication: CRITICAL ILLNESS POLYNEUROPATHY
     Dosage: INTAKE: FOR APPROXIMATELY 5W
     Route: 065
  4. DOBUTAMINE [Concomitant]
     Active Substance: DOBUTAMINE\DOBUTAMINE HYDROCHLORIDE
     Dosage: 3.6MCG/KG/MIN
     Route: 065

REACTIONS (1)
  - Acute hepatic failure [Recovered/Resolved with Sequelae]
